FAERS Safety Report 6137474-4 (Version None)
Quarter: 2009Q1

REPORT INFORMATION
  Report Type: 
  Country: None (occurrence: None)
  Receive Date: 20090326
  Receipt Date: 20090310
  Transmission Date: 20090719
  Serious: Yes (Death, Hospitalization)
  Sender: FDA-Public Use
  Company Number: A-JP2009-23734

PATIENT
  Age: 70 Year
  Sex: Female
  Weight: 56 kg

DRUGS (8)
  1. TRACLEER [Suspect]
     Indication: PULMONARY ARTERIAL HYPERTENSION
     Dosage: 125 MG, BID, ORAL; 62.5 MG, BID, ORAL
     Route: 048
     Dates: start: 20070308, end: 20070312
  2. WARFARIN SODIUM [Concomitant]
  3. PIMOBENDAN (PIMOBENDAN) [Concomitant]
  4. ALLOPURINOL [Concomitant]
  5. FUROSEMIDE [Concomitant]
  6. OXYGEN (OXYGEN) [Concomitant]
  7. DIGOXIN [Concomitant]
  8. MARZULENE ES (AZULENE SODIUM SULFONATE, LEVOGLUTAMIDE) [Concomitant]

REACTIONS (9)
  - BLOOD ALKALINE PHOSPHATASE INCREASED [None]
  - CHRONIC MYELOID LEUKAEMIA [None]
  - CONDITION AGGRAVATED [None]
  - DYSPNOEA [None]
  - LEUKAEMIC INFILTRATION PULMONARY [None]
  - PALPITATIONS [None]
  - RESPIRATORY FAILURE [None]
  - RIGHT VENTRICULAR FAILURE [None]
  - VASCULAR RUPTURE [None]
